FAERS Safety Report 15694549 (Version 3)
Quarter: 2019Q1

REPORT INFORMATION
  Report Type: Spontaneous
  Country: CZ (occurrence: CZ)
  Receive Date: 20181206
  Receipt Date: 20190125
  Transmission Date: 20190417
  Serious: Yes (Other)
  Sender: FDA-Public Use
  Company Number: CZ-TEVA-2018-CZ-983504

PATIENT
  Age: 5 Year
  Sex: Male
  Weight: 18.3 kg

DRUGS (4)
  1. IFOSFAMIDE. [Concomitant]
     Active Substance: IFOSFAMIDE
     Indication: PLEUROPULMONARY BLASTOMA
     Route: 065
  2. VINCRISTINE [Suspect]
     Active Substance: VINCRISTINE
     Indication: PLEUROPULMONARY BLASTOMA
     Dosage: IN FRAME OF IVADO REGIMEN
     Route: 042
  3. ACTINOMYCINE [Concomitant]
     Indication: PLEUROPULMONARY BLASTOMA
     Route: 065
  4. DOXORUBICIN [Suspect]
     Active Substance: DOXORUBICIN
     Indication: PLEUROPULMONARY BLASTOMA
     Dosage: IN FRAME OF IVADO REGIMEN
     Route: 042

REACTIONS (4)
  - Infection [Unknown]
  - Dental caries [Recovered/Resolved]
  - Off label use [Unknown]
  - Cachexia [Not Recovered/Not Resolved]
